FAERS Safety Report 9835437 (Version 1)
Quarter: 2014Q1

REPORT INFORMATION
  Report Type: Spontaneous
  Country: US (occurrence: US)
  Receive Date: 20140122
  Receipt Date: 20140122
  Transmission Date: 20141002
  Serious: No
  Sender: FDA-Public Use
  Company Number: US-BRISTOL-MYERS SQUIBB COMPANY-19605757

PATIENT
  Age: 89 Year
  Sex: Female
  Weight: 76.19 kg

DRUGS (3)
  1. ELIQUIS [Suspect]
     Indication: ATRIAL FIBRILLATION
  2. METHOTREXATE [Concomitant]
  3. VITAMINS [Concomitant]

REACTIONS (2)
  - Epistaxis [Unknown]
  - Local swelling [Recovered/Resolved]
